FAERS Safety Report 25849881 (Version 1)
Quarter: 2025Q3

REPORT INFORMATION
  Report Type: Report from Study
  Country: US (occurrence: US)
  Receive Date: 20250926
  Receipt Date: 20250926
  Transmission Date: 20251021
  Serious: Yes (Hospitalization)
  Sender: AMGEN
  Company Number: US-AMGEN-USASL2025188497

PATIENT
  Age: 29 Year
  Sex: Male

DRUGS (2)
  1. RAVICTI [Suspect]
     Active Substance: GLYCEROL PHENYLBUTYRATE
     Indication: Ornithine transcarbamoylase deficiency
     Dosage: 4.5 MILLILITER, TID (GLASS BOTTLE - LIQUID)
     Route: 065
     Dates: start: 20250801
  2. RAVICTI [Suspect]
     Active Substance: GLYCEROL PHENYLBUTYRATE
     Route: 065
     Dates: start: 2025

REACTIONS (1)
  - Ammonia abnormal [Unknown]

NARRATIVE: CASE EVENT DATE: 20250801
